FAERS Safety Report 4443341-4 (Version None)
Quarter: 2004Q3

REPORT INFORMATION
  Report Type: 
  Country: None (occurrence: None)
  Receive Date: 20040907
  Receipt Date: 20040907
  Transmission Date: 20050211
  Serious: Yes (Other)
  Sender: FDA-Public Use
  Company Number: None

PATIENT
  Age: 66 Year
  Sex: Male
  Weight: 99.8 kg

DRUGS (6)
  1. GATIFLOXACIN [Suspect]
  2. TERAZOSIN HCL [Concomitant]
  3. LISINOPRIL [Concomitant]
  4. METFORMIN HCL [Concomitant]
  5. SYNTHROID [Concomitant]
  6. DIPHENHYDRAMINE HCL [Concomitant]

REACTIONS (2)
  - RASH [None]
  - URTICARIA [None]
